FAERS Safety Report 24325522 (Version 2)
Quarter: 2024Q4

REPORT INFORMATION
  Report Type: Spontaneous
  Country: US (occurrence: None)
  Receive Date: 20240917
  Receipt Date: 20241009
  Transmission Date: 20250115
  Serious: No
  Sender: NATCO PHARMA
  Company Number: US-NATCOUSA-2024-NATCOUSA-000225

PATIENT
  Age: 68 Year
  Sex: Female
  Weight: 86.18 kg

DRUGS (7)
  1. ANASTROZOLE [Suspect]
     Active Substance: ANASTROZOLE
     Indication: Breast cancer
     Dosage: 1 MG
     Dates: end: 20240822
  2. ROBAXIN [Concomitant]
     Active Substance: METHOCARBAMOL
     Indication: Neuromyopathy
  3. KLONOPIN [Concomitant]
     Active Substance: CLONAZEPAM
     Indication: Neuromyopathy
  4. BACLOFEN [Concomitant]
     Active Substance: BACLOFEN
     Indication: Neuromyopathy
  5. AMLODIPINE [Concomitant]
     Active Substance: AMLODIPINE BESYLATE
     Indication: Product used for unknown indication
  6. SYNTHROID [Concomitant]
     Active Substance: LEVOTHYROXINE SODIUM
     Indication: Product used for unknown indication
  7. CYTOMEL [Concomitant]
     Active Substance: LIOTHYRONINE SODIUM
     Indication: Product used for unknown indication

REACTIONS (1)
  - Diplopia [Recovering/Resolving]

NARRATIVE: CASE EVENT DATE: 20240729
